FAERS Safety Report 22187981 (Version 2)
Quarter: 2023Q2

REPORT INFORMATION
  Report Type: Spontaneous
  Country: FR (occurrence: FR)
  Receive Date: 20230408
  Receipt Date: 20230529
  Transmission Date: 20230721
  Serious: Yes (Hospitalization, Other)
  Sender: FDA-Public Use
  Company Number: FR-002147023-NVSC2023FR078977

PATIENT
  Age: 21 Year
  Sex: Male
  Weight: 70 kg

DRUGS (3)
  1. MYFORTIC [Suspect]
     Active Substance: MYCOPHENOLATE SODIUM
     Indication: C3 glomerulopathy
     Dosage: 1440 MG, Q12H (720 MG, 2X/DAY)
     Route: 048
     Dates: start: 202107, end: 20221226
  2. SOLIRIS [Suspect]
     Active Substance: ECULIZUMAB
     Indication: C3 glomerulopathy
     Dosage: 1200 MG, Q2W, (CONCENTRATE FOR SOLUTIION FOR INFUSION, 10MG/ML FOR DURATION 493 DAYS)
     Route: 042
     Dates: start: 20210811, end: 20221216
  3. NIMENRIX [Suspect]
     Active Substance: CLOSTRIDIUM TETANI TOXOID ANTIGEN (FORMALDEHYDE INACTIVATED)\MENINGOCOCCAL POLYSACCHARIDE VACCINE, G
     Indication: Immunisation
     Dosage: UNK UNK, ONCE/SINGLE
     Route: 065
     Dates: start: 20210716, end: 20210716

REACTIONS (4)
  - Meningitis meningococcal [Recovered/Resolved]
  - Arthritis bacterial [Recovering/Resolving]
  - Off label use [Unknown]
  - Drug ineffective [Unknown]

NARRATIVE: CASE EVENT DATE: 20221225
